FAERS Safety Report 21192341 (Version 3)
Quarter: 2023Q1

REPORT INFORMATION
  Report Type: Report from Study
  Country: US (occurrence: US)
  Receive Date: 20220809
  Receipt Date: 20230103
  Transmission Date: 20230418
  Serious: Yes (Hospitalization)
  Sender: FDA-Public Use
  Company Number: US-BIOGEN-2022BI01146076

PATIENT
  Age: 43 Year
  Sex: Female
  Weight: 94.4 kg

DRUGS (13)
  1. TYSABRI [Suspect]
     Active Substance: NATALIZUMAB
     Indication: Acute graft versus host disease
     Route: 050
  2. TYSABRI [Suspect]
     Active Substance: NATALIZUMAB
     Dosage: 1 TIME - 300MG PREPARED IN 100 ML INFUSION
     Route: 050
     Dates: start: 20190103
  3. TYSABRI [Suspect]
     Active Substance: NATALIZUMAB
     Dosage: 1 TIME - - 300MG PREPARED IN 100 ML INFUSION
     Route: 050
     Dates: start: 20190117
  4. PREDNISONE [Suspect]
     Active Substance: PREDNISONE
     Indication: Product used for unknown indication
     Dosage: 10 MG AND 5 MG ON ALTERNATING DAYS?LAST TAPERED ON 24 SEP 2019 - 10 MG
     Route: 050
  5. TACROLIMUS [Concomitant]
     Active Substance: TACROLIMUS
     Indication: Product used for unknown indication
     Route: 050
  6. TACROLIMUS [Concomitant]
     Active Substance: TACROLIMUS
     Route: 050
  7. TACROLIMUS [Concomitant]
     Active Substance: TACROLIMUS
     Route: 050
     Dates: start: 20191015
  8. OMEPRAZOLE [Concomitant]
     Active Substance: OMEPRAZOLE
     Indication: Product used for unknown indication
     Route: 050
  9. OMEPRAZOLE [Concomitant]
     Active Substance: OMEPRAZOLE
     Route: 050
  10. CEFEPIME [Concomitant]
     Active Substance: CEFEPIME HYDROCHLORIDE
     Indication: Product used for unknown indication
     Route: 050
  11. FLAGYL [Concomitant]
     Active Substance: METRONIDAZOLE\METRONIDAZOLE HYDROCHLORIDE
     Indication: Product used for unknown indication
     Route: 050
  12. PROTONIX [Concomitant]
     Active Substance: PANTOPRAZOLE SODIUM
     Indication: Product used for unknown indication
     Route: 050
  13. ELTROMBOPAG [Concomitant]
     Active Substance: ELTROMBOPAG
     Indication: Product used for unknown indication
     Route: 050

REACTIONS (3)
  - Anaemia [Recovered/Resolved]
  - Acinetobacter sepsis [Recovered/Resolved]
  - Staphylococcal sepsis [Recovered/Resolved]

NARRATIVE: CASE EVENT DATE: 20190419
